FAERS Safety Report 5149028-7 (Version None)
Quarter: 2006Q4

REPORT INFORMATION
  Report Type: 
  Country: None (occurrence: None)
  Receive Date: 20061108
  Receipt Date: 20061023
  Transmission Date: 20070319
  Serious: Yes (Hospitalization)
  Sender: FDA-Public Use
  Company Number: TRP_0877_2006

PATIENT
  Age: 48 Year
  Sex: Male

DRUGS (7)
  1. RIBASPHERE [Suspect]
     Indication: HEPATITIS C
     Dosage: 1200 MG QDAY PO
     Route: 048
     Dates: start: 20060812
  2. PEGASYS [Suspect]
     Indication: HEPATITIS C
     Dosage: 180 MCG QWK SC
     Route: 058
     Dates: start: 20060812
  3. CELEXA [Concomitant]
  4. TRAZODONE HCL [Concomitant]
  5. XANAX [Concomitant]
  6. VALIUM [Suspect]
     Indication: INSOMNIA
     Dosage: DF
  7. IBUPROFEN [Concomitant]

REACTIONS (16)
  - ANXIETY [None]
  - DYSPNOEA [None]
  - EATING DISORDER [None]
  - GRAND MAL CONVULSION [None]
  - HEART RATE INCREASED [None]
  - INSOMNIA [None]
  - MOOD ALTERED [None]
  - MYALGIA [None]
  - PAIN [None]
  - PAIN IN EXTREMITY [None]
  - PLATELET COUNT DECREASED [None]
  - RASH [None]
  - SELF-MEDICATION [None]
  - THINKING ABNORMAL [None]
  - TREMOR [None]
  - WEIGHT FLUCTUATION [None]
